FAERS Safety Report 6863929-0 (Version None)
Quarter: 2010Q3

REPORT INFORMATION
  Report Type: 
  Country: None (occurrence: None)
  Receive Date: 20100720
  Receipt Date: 20100702
  Transmission Date: 20110219
  Serious: Yes (Hospitalization)
  Sender: FDA-Public Use
  Company Number: 2010P1000114

PATIENT
  Age: 53 Year
  Sex: Female
  Weight: 113.3993 kg

DRUGS (26)
  1. WARFARIN SODIUM [Suspect]
     Indication: ATRIAL FIBRILLATION
     Dosage: 5 MG; QM, W, F; PO 2.5 MG; QTU, TH, SA, SU; PO
     Route: 048
     Dates: start: 20100501, end: 20100626
  2. WARFARIN SODIUM [Suspect]
     Indication: ATRIAL FIBRILLATION
     Dosage: 5 MG; QM, W, F; PO 2.5 MG; QTU, TH, SA, SU; PO
     Route: 048
     Dates: start: 20100501, end: 20100626
  3. OXYGEN [Concomitant]
  4. FEXOFENADINE [Concomitant]
  5. ADVAIR DISKUS 100/50 [Concomitant]
  6. GUAIFENESIN [Concomitant]
  7. HYDROCHLOROTHIAZIDE [Concomitant]
  8. HYDROCODONE BITARTRATE [Concomitant]
  9. LEVOTHYROXINE SODIUM [Concomitant]
  10. LOVAZA [Concomitant]
  11. MAGNESIUM OXIDE [Concomitant]
  12. METOLAZONE [Concomitant]
  13. MUPIROCIN [Concomitant]
  14. NEXIUM [Concomitant]
  15. NYSTATIN [Concomitant]
  16. PAXIL [Concomitant]
  17. PREDNISONE [Concomitant]
  18. ROZEREM [Concomitant]
  19. SOTALOL HCL [Concomitant]
  20. SPIRONOLACTONE [Concomitant]
  21. TUMS (CALCIUM CARBONATE) [Concomitant]
  22. ULORIC [Concomitant]
  23. SOFT GEL VITAMIN D [Concomitant]
  24. XALATAN [Concomitant]
  25. ALBUTEROL [Concomitant]
  26. IPRATROPIUM BROMIDE [Concomitant]

REACTIONS (6)
  - DIABETIC FOOT [None]
  - EPISTAXIS [None]
  - INFECTED SKIN ULCER [None]
  - INTERNATIONAL NORMALISED RATIO DECREASED [None]
  - INTERNATIONAL NORMALISED RATIO INCREASED [None]
  - PRODUCT SUBSTITUTION ISSUE [None]
